FAERS Safety Report 13930291 (Version 7)
Quarter: 2018Q1

REPORT INFORMATION
  Report Type: Report from Study
  Country: PL (occurrence: PL)
  Receive Date: 20170901
  Receipt Date: 20180129
  Transmission Date: 20180508
  Serious: Yes (Other)
  Sender: FDA-Public Use
  Company Number: PL-AMGEN-POLCT2017131841

PATIENT
  Age: 76 Year
  Sex: Female
  Weight: 77.8 kg

DRUGS (9)
  1. PEMBROLIZUMAB. [Suspect]
     Active Substance: PEMBROLIZUMAB
     Indication: MALIGNANT MELANOMA
     Dosage: UNK
     Route: 042
     Dates: start: 20170605, end: 20170807
  2. ROSWERA [Concomitant]
     Active Substance: ROSUVASTATIN
     Dosage: 15 MG, UNK
     Route: 048
     Dates: start: 2015
  3. CIPRONEX [Concomitant]
     Active Substance: CIPROFLOXACIN
     Dosage: 250 MG, UNK
     Route: 048
     Dates: start: 20170606, end: 20170613
  4. LIGNOCAINUM HYDROCHLORICUM [Concomitant]
     Dosage: 20 ML, UNK
     Route: 042
     Dates: start: 20170707, end: 20170707
  5. THYROZOL [Suspect]
     Active Substance: METHIMAZOLE
     Indication: THYROID DISORDER
     Dosage: 20 MUG AND 20 MG, UNK
     Route: 048
     Dates: start: 20170614, end: 20170828
  6. TALIMOGENE LAHERPAREPVEC [Suspect]
     Active Substance: TALIMOGENE LAHERPAREPVEC
     Indication: MALIGNANT MELANOMA
     Dosage: UNK
     Route: 026
     Dates: start: 20170605
  7. TENSART [Concomitant]
     Dosage: 80 MG, UNK
     Route: 048
     Dates: start: 2003
  8. TRAMAL [Concomitant]
     Active Substance: TRAMADOL
     Dosage: 50 MG, UNK
     Route: 048
     Dates: start: 20170513, end: 20170708
  9. TALIMOGENE LAHERPAREPVEC [Suspect]
     Active Substance: TALIMOGENE LAHERPAREPVEC
     Dosage: UNK
     Route: 026
     Dates: start: 20170920

REACTIONS (2)
  - Alanine aminotransferase increased [Recovered/Resolved]
  - Aspartate aminotransferase increased [Recovered/Resolved]

NARRATIVE: CASE EVENT DATE: 20170828
